FAERS Safety Report 4316321-7 (Version None)
Quarter: 2004Q1

REPORT INFORMATION
  Report Type: 
  Country: None (occurrence: None)
  Receive Date: 20040311
  Receipt Date: 20040302
  Transmission Date: 20041129
  Serious: Yes (Hospitalization, Other)
  Sender: FDA-Public Use
  Company Number: 2004009191

PATIENT
  Age: 60 Year
  Sex: Male

DRUGS (9)
  1. ATORVASTATIN CALCIUM [Suspect]
     Indication: ILL-DEFINED DISORDER
     Dosage: 20 MG (DAILY) ORAL
     Route: 048
     Dates: start: 20031223, end: 20040126
  2. CYCLOSPORINE [Suspect]
     Indication: RENAL TRANSPLANT
     Dosage: 300 MG, ORAL
     Route: 048
     Dates: start: 20031101
  3. PREDNISONE [Concomitant]
  4. MYCOPHENOLATE MOFETIL (MYCOPHENOLATE MOFETIL) [Concomitant]
  5. BACTRIM [Concomitant]
  6. ITRACONAZOLE [Concomitant]
  7. OMEPRAZOLE [Concomitant]
  8. ATENOLOL [Concomitant]
  9. FERROUS SULFATE TAB [Concomitant]

REACTIONS (4)
  - BLOOD POTASSIUM INCREASED [None]
  - DRUG INTERACTION [None]
  - MYOPATHY [None]
  - RHABDOMYOLYSIS [None]
